FAERS Safety Report 8451989-5 (Version None)
Quarter: 2012Q2

REPORT INFORMATION
  Report Type: 
  Country: None (occurrence: None)
  Receive Date: 20120620
  Receipt Date: 20120504
  Transmission Date: 20120825
  Serious: No
  Sender: FDA-Public Use
  Company Number: US-VERTEX PHARMACEUTICALS INC.-AE-2012-004472

PATIENT
  Sex: Female

DRUGS (8)
  1. RIBAVIRIN [Concomitant]
     Indication: HEPATITIS C
     Dates: start: 20120305
  2. ATENOLOL [Concomitant]
  3. PEGINTERFERON ALFA-2A [Concomitant]
     Indication: HEPATITIS C
     Dates: start: 20120305
  4. HYDROCHLOROTHIAZIDE [Concomitant]
  5. INCIVEK [Suspect]
     Indication: HEPATITIS C
     Route: 048
     Dates: start: 20120305
  6. LISINOPRIL [Concomitant]
  7. VIVELLE [Concomitant]
  8. ALPRAZOLAM [Concomitant]

REACTIONS (1)
  - VERTIGO [None]
